FAERS Safety Report 25886927 (Version 1)
Quarter: 2025Q4

REPORT INFORMATION
  Report Type: Report from Study
  Country: US (occurrence: US)
  Receive Date: 20251006
  Receipt Date: 20251006
  Transmission Date: 20260118
  Serious: Yes (Death, Hospitalization, Other)
  Sender: UCB
  Company Number: US-UCBSA-2025061476

PATIENT
  Age: 71 Year
  Sex: Male

DRUGS (1)
  1. FINTEPLA [Suspect]
     Active Substance: FENFLURAMINE
     Indication: Lennox-Gastaut syndrome
     Dosage: 0.5 MILLILITER, 2X/DAY (BID)
     Route: 048
     Dates: start: 20240125, end: 202509

REACTIONS (2)
  - Death [Fatal]
  - Urinary tract infection [Recovered/Resolved]

NARRATIVE: CASE EVENT DATE: 20250501
